FAERS Safety Report 8743175 (Version 2)
Quarter: 2012Q4

REPORT INFORMATION
  Report Type: 
  Country: BE (occurrence: BE)
  Receive Date: 20120824
  Receipt Date: 20121002
  Transmission Date: 20130627
  Serious: Yes (Disabling)
  Sender: FDA-Public Use
  Company Number: BE-BAYER-2012-087619

PATIENT
  Age: 50 Year
  Sex: Female

DRUGS (6)
  1. CIPROXINE [Suspect]
     Indication: URINARY TRACT INFECTION
     Dosage: 500 mg, BID
     Route: 048
     Dates: start: 20120820, end: 20120822
  2. EMCONCOR [Concomitant]
     Indication: HYPERTENSION
     Dosage: 5 mg, QD
  3. CYMBALTA [Concomitant]
     Dosage: 60 mg, QD
  4. SIPRALEXA [Concomitant]
     Dosage: 10 mg, QD
  5. PARACETAMOL [Concomitant]
  6. IBUPROFEN [Concomitant]

REACTIONS (3)
  - Hepatitis [None]
  - Abdominal discomfort [None]
  - Abdominal pain lower [None]
